FAERS Safety Report 12287612 (Version 1)
Quarter: 2016Q2

REPORT INFORMATION
  Report Type: Spontaneous
  Country: US (occurrence: US)
  Receive Date: 20160420
  Receipt Date: 20160420
  Transmission Date: 20160815
  Serious: No
  Sender: FDA-Public Use
  Company Number: US-BAXALTA-2016BLT002557

PATIENT
  Sex: Female

DRUGS (1)
  1. GAMMAGARD LIQUID [Suspect]
     Active Substance: HUMAN IMMUNOGLOBULIN G
     Indication: IMMUNODEFICIENCY COMMON VARIABLE
     Dosage: 6 G, UNK
     Route: 065

REACTIONS (5)
  - Arthralgia [Unknown]
  - Urticaria [Unknown]
  - Hyperhidrosis [Unknown]
  - Petechiae [Unknown]
  - Pyrexia [Unknown]
